FAERS Safety Report 8488657-X (Version None)
Quarter: 2012Q3

REPORT INFORMATION
  Report Type: 
  Country: None (occurrence: None)
  Receive Date: 20120705
  Receipt Date: 20120703
  Transmission Date: 20120928
  Serious: Yes (Other)
  Sender: FDA-Public Use
  Company Number: US-PFIZER INC-2012100491

PATIENT
  Sex: Female
  Weight: 111 kg

DRUGS (10)
  1. LYRICA [Suspect]
     Indication: NERVE INJURY
     Dosage: 75 MG, 3X/DAY
     Route: 048
     Dates: start: 20090101
  2. LYRICA [Suspect]
     Indication: NEURALGIA
  3. LYRICA [Suspect]
     Indication: INTERVERTEBRAL DISC DISORDER
  4. LYRICA [Suspect]
     Indication: HYPOAESTHESIA
  5. LYRICA [Suspect]
     Indication: MUSCULAR WEAKNESS
  6. CYMBALTA [Concomitant]
     Indication: PAIN
     Dosage: UNK
  7. OXYMORPHONE HYDROCHLORIDE [Concomitant]
     Indication: PAIN
     Dosage: 40 MG, 2X/DAY
  8. LYRICA [Suspect]
     Indication: SPINAL COLUMN STENOSIS
  9. OXYCODONE [Concomitant]
     Indication: PAIN
     Dosage: 60 MG, EVERY 4 HRS
     Route: 048
  10. LYRICA [Suspect]
     Indication: OSTEOARTHRITIS

REACTIONS (2)
  - NEURALGIA [None]
  - SPINAL DISORDER [None]
